FAERS Safety Report 17062450 (Version 1)
Quarter: 2019Q4

REPORT INFORMATION
  Report Type: Spontaneous
  Country: US (occurrence: US)
  Receive Date: 20191122
  Receipt Date: 20191122
  Transmission Date: 20200122
  Serious: No
  Sender: FDA-Public Use
  Company Number: US-JNJFOC-20191122104

PATIENT
  Age: 44 Year
  Sex: Male
  Weight: 56.75 kg

DRUGS (1)
  1. MENS ROGAINE EXTRA STRENGTH [Suspect]
     Active Substance: MINOXIDIL
     Indication: ALOPECIA
     Dosage: ONE TIME TOTAL
     Route: 061
     Dates: start: 20191113

REACTIONS (4)
  - Eye disorder [Not Recovered/Not Resolved]
  - Underdose [Unknown]
  - Pruritus [Not Recovered/Not Resolved]
  - Application site vesicles [Recovered/Resolved]

NARRATIVE: CASE EVENT DATE: 20191113
